FAERS Safety Report 14939578 (Version 3)
Quarter: 2018Q3

REPORT INFORMATION
  Report Type: Spontaneous
  Country: US (occurrence: US)
  Receive Date: 20180525
  Receipt Date: 20180704
  Transmission Date: 20181010
  Serious: No
  Sender: FDA-Public Use
  Company Number: US-PFIZER INC-2018215153

PATIENT
  Age: 51 Year
  Sex: Female

DRUGS (1)
  1. XELJANZ XR [Suspect]
     Active Substance: TOFACITINIB CITRATE
     Indication: RHEUMATOID ARTHRITIS
     Dosage: 11 MG, DAILY

REACTIONS (6)
  - Joint swelling [Unknown]
  - Musculoskeletal stiffness [Unknown]
  - Drug effect incomplete [Unknown]
  - Pain in extremity [Unknown]
  - Arthralgia [Unknown]
  - Muscular weakness [Unknown]
